FAERS Safety Report 8798597 (Version 1)
Quarter: 2012Q4

REPORT INFORMATION
  Report Type: Spontaneous
  Country: US (occurrence: None)
  Receive Date: 20120917
  Receipt Date: 20120917
  Transmission Date: 20130627
  Serious: Yes (Death)
  Sender: FDA-Public Use
  Company Number: None

PATIENT
  Age: 54 Year
  Sex: Female

DRUGS (1)
  1. REVLIMID [Suspect]
     Indication: AMYLOIDOSIS
     Dosage: 5 mg qdx21d/28d orally
     Route: 048
     Dates: start: 201104, end: 201109

REACTIONS (4)
  - Fall [None]
  - Wound [None]
  - Gastroenteritis viral [None]
  - Drug effect decreased [None]
